FAERS Safety Report 9567730 (Version 2)
Quarter: 2013Q3

REPORT INFORMATION
  Report Type: Spontaneous
  Country: US (occurrence: US)
  Receive Date: 20130930
  Receipt Date: 20130930
  Transmission Date: 20140515
  Serious: No
  Sender: FDA-Public Use
  Company Number: US-AMGEN-USASP2013014655

PATIENT
  Age: 75 Year
  Sex: Male
  Weight: 80.73 kg

DRUGS (8)
  1. ENBREL [Suspect]
     Indication: RHEUMATOID ARTHRITIS
     Dosage: 50 MG, QWK
     Route: 058
     Dates: start: 20130205
  2. AMLODIPINE [Concomitant]
     Dosage: 2.5 MG, UNK
  3. OMEPRAZOLE [Concomitant]
     Dosage: 40 MG, UNK
  4. ASPIRIN [Concomitant]
     Dosage: 81 MG, UNK
  5. METOPROLOL [Concomitant]
     Dosage: 200 MG, UNK
  6. VITAMIN D                          /00107901/ [Concomitant]
     Dosage: 50000 UNIT, UNK
  7. FISH OIL [Concomitant]
     Dosage: UNK
  8. CHOLESTROL [Concomitant]
     Dosage: UNK

REACTIONS (3)
  - Arthralgia [Not Recovered/Not Resolved]
  - Joint swelling [Not Recovered/Not Resolved]
  - Drug ineffective [Unknown]
